FAERS Safety Report 6645269-8 (Version None)
Quarter: 2010Q1

REPORT INFORMATION
  Report Type: 
  Country: None (occurrence: None)
  Receive Date: 20100322
  Receipt Date: 20100313
  Transmission Date: 20100710
  Serious: Yes (Other)
  Sender: FDA-Public Use
  Company Number: PHHY2010MX15598

PATIENT
  Sex: Female

DRUGS (1)
  1. RASILEZ [Suspect]
     Indication: HYPERTENSION
     Dosage: 1 TABLET (300MG) PER DAY
     Dates: start: 20090401, end: 20090630

REACTIONS (3)
  - DIVERTICULITIS [None]
  - GASTROINTESTINAL MOTILITY DISORDER [None]
  - WEIGHT DECREASED [None]
